FAERS Safety Report 6819921-5 (Version None)
Quarter: 2010Q3

REPORT INFORMATION
  Report Type: 
  Country: None (occurrence: None)
  Receive Date: 20100707
  Receipt Date: 20100628
  Transmission Date: 20110219
  Serious: Yes (Hospitalization)
  Sender: FDA-Public Use
  Company Number: FR-ROCHE-690399

PATIENT
  Age: 17 Year
  Sex: Male

DRUGS (5)
  1. TAMIFLU [Suspect]
     Indication: H1N1 INFLUENZA
     Dosage: DOSE: 1 DOSEFORM
     Route: 048
     Dates: start: 20100114, end: 20100116
  2. MINOCYCLINE [Suspect]
     Indication: URETHRITIS
     Route: 048
     Dates: start: 20091230, end: 20100114
  3. ADVIL LIQUI-GELS [Suspect]
     Indication: H1N1 INFLUENZA
     Route: 048
     Dates: start: 20100114
  4. DOLIPRANE [Suspect]
     Indication: H1N1 INFLUENZA
     Route: 048
     Dates: start: 20100114
  5. CANTHARIDIN [Suspect]
     Indication: URETHRITIS
     Dosage: DRUG: CANTHARIS (HOMEOPATHY)
     Route: 048
     Dates: start: 20091230, end: 20100114

REACTIONS (1)
  - DRUG RASH WITH EOSINOPHILIA AND SYSTEMIC SYMPTOMS [None]
